FAERS Safety Report 11613965 (Version 1)
Quarter: 2015Q4

REPORT INFORMATION
  Report Type: Spontaneous
  Country: US (occurrence: US)
  Receive Date: 20151008
  Receipt Date: 20151008
  Transmission Date: 20160304
  Serious: Yes (Other)
  Sender: FDA-Public Use
  Company Number: US-ASTRAZENECA-2015SE96424

PATIENT
  Sex: Female

DRUGS (3)
  1. FASLODEX [Suspect]
     Active Substance: FULVESTRANT
     Route: 030
     Dates: start: 201006, end: 201009
  2. IBRANCE [Suspect]
     Active Substance: PALBOCICLIB
     Route: 065
  3. AROMASIN [Suspect]
     Active Substance: EXEMESTANE
     Route: 065
     Dates: start: 201303, end: 201410

REACTIONS (1)
  - Malignant neoplasm progression [Unknown]
